FAERS Safety Report 20858519 (Version 1)
Quarter: 2022Q2

REPORT INFORMATION
  Report Type: Spontaneous
  Country: US (occurrence: US)
  Receive Date: 20220521
  Receipt Date: 20220521
  Transmission Date: 20220721
  Serious: No
  Sender: FDA-Public Use
  Company Number: US-FRESENIUS KABI-FK202205820

PATIENT

DRUGS (1)
  1. SENSORCAINE MPF [Suspect]
     Active Substance: BUPIVACAINE HYDROCHLORIDE
     Indication: Nerve block
     Dosage: ASKED BUT UNKNOWN
     Dates: start: 20220517, end: 20220517

REACTIONS (1)
  - Drug ineffective [Unknown]

NARRATIVE: CASE EVENT DATE: 20220517
